FAERS Safety Report 7365893-7 (Version None)
Quarter: 2011Q1

REPORT INFORMATION
  Report Type: 
  Country: None (occurrence: None)
  Receive Date: 20110322
  Receipt Date: 20110316
  Transmission Date: 20110831
  Serious: Yes (Death, Hospitalization, Other)
  Sender: FDA-Public Use
  Company Number: US-ASTELLAS-2011US000637

PATIENT
  Sex: Female

DRUGS (2)
  1. PROGRAF [Suspect]
     Indication: RENAL TRANSPLANT
     Dosage: 8 MG, UID/QD
     Route: 048
     Dates: start: 20101017
  2. PROGRAF [Suspect]
     Dosage: 4 MG, Q12 HOURS
     Route: 048

REACTIONS (8)
  - MULTI-ORGAN FAILURE [None]
  - URINARY TRACT INFECTION [None]
  - PULMONARY EMBOLISM [None]
  - HYPERKALAEMIA [None]
  - RENAL FAILURE ACUTE [None]
  - RIGHT VENTRICULAR FAILURE [None]
  - RESPIRATORY FAILURE [None]
  - SICKLE CELL ANAEMIA [None]
